FAERS Safety Report 15975127 (Version 5)
Quarter: 2022Q2

REPORT INFORMATION
  Report Type: Spontaneous
  Country: US (occurrence: US)
  Receive Date: 20190218
  Receipt Date: 20220516
  Transmission Date: 20220721
  Serious: No
  Sender: FDA-Public Use
  Company Number: US-PFIZER INC-2019062043

PATIENT
  Age: 58 Year
  Sex: Female

DRUGS (1)
  1. XELJANZ XR [Suspect]
     Active Substance: TOFACITINIB CITRATE
     Dosage: 11 MG, (TAKE 1 TABLET BY MOUTH EVERY DAY)
     Route: 048

REACTIONS (4)
  - Product prescribing error [Unknown]
  - Psoriasis [Unknown]
  - Illness [Unknown]
  - Dry mouth [Unknown]
